FAERS Safety Report 18055007 (Version 1)
Quarter: 2020Q3

REPORT INFORMATION
  Report Type: Spontaneous
  Country: US (occurrence: US)
  Receive Date: 20200722
  Receipt Date: 20200722
  Transmission Date: 20201103
  Serious: Yes (Death)
  Sender: FDA-Public Use
  Company Number: US-PFIZER INC-2019177732

PATIENT
  Age: 56 Year
  Sex: Male
  Weight: 87.7 kg

DRUGS (4)
  1. RAPAMUNE [Suspect]
     Active Substance: SIROLIMUS
     Indication: LIVER TRANSPLANT
     Dosage: 3 MG, DAILY
     Route: 048
     Dates: start: 2015
  2. RAPAMUNE [Suspect]
     Active Substance: SIROLIMUS
     Dosage: 4 MG, DAILY
     Route: 048
  3. TACROLIMUS. [Concomitant]
     Active Substance: TACROLIMUS
     Dosage: UNK
  4. RISEDRONATE [Concomitant]
     Active Substance: RISEDRONATE SODIUM
     Indication: OSTEOPOROSIS
     Dosage: UNK

REACTIONS (3)
  - Product use in unapproved indication [Unknown]
  - Death [Fatal]
  - Off label use [Unknown]

NARRATIVE: CASE EVENT DATE: 2015
